FAERS Safety Report 7771394-4 (Version None)
Quarter: 2011Q3

REPORT INFORMATION
  Report Type: 
  Country: None (occurrence: None)
  Receive Date: 20110922
  Receipt Date: 20110913
  Transmission Date: 20111222
  Serious: Yes (Other)
  Sender: FDA-Public Use
  Company Number: CA-JNJFOC-20110809769

PATIENT
  Sex: Female

DRUGS (6)
  1. PROVERA [Concomitant]
  2. ESTRACE [Concomitant]
  3. SIMPONI [Suspect]
     Indication: RHEUMATOID ARTHRITIS
     Route: 058
     Dates: start: 20091130, end: 20110715
  4. PLAQUENIL [Concomitant]
  5. ASPIRIN [Concomitant]
  6. FOLIC ACID [Concomitant]

REACTIONS (2)
  - PNEUMONIA [None]
  - EAR INFECTION [None]
